FAERS Safety Report 6316243-6 (Version None)
Quarter: 2009Q3

REPORT INFORMATION
  Report Type: 
  Country: None (occurrence: None)
  Receive Date: 20090819
  Receipt Date: 20090819
  Transmission Date: 20100115
  Serious: Yes (Hospitalization)
  Sender: FDA-Public Use
  Company Number: None

PATIENT
  Sex: Female
  Weight: 65.45 kg

DRUGS (1)
  1. MEMANTINE HCL [Suspect]
     Dosage: 1470 MG

REACTIONS (7)
  - ANAEMIA [None]
  - CONVULSION [None]
  - FALL [None]
  - HEART RATE IRREGULAR [None]
  - HYPOTENSION [None]
  - HYPOXIA [None]
  - VISION BLURRED [None]
